FAERS Safety Report 13680104 (Version 2)
Quarter: 2017Q3

REPORT INFORMATION
  Report Type: Spontaneous
  Country: IT (occurrence: IT)
  Receive Date: 20170622
  Receipt Date: 20170803
  Transmission Date: 20171127
  Serious: Yes (Other)
  Sender: FDA-Public Use
  Company Number: IT-TEVA-778909ACC

PATIENT
  Age: 57 Year
  Sex: Female

DRUGS (7)
  1. ETOPOSIDE TEVA - 20 MG/ML CONCENTRATO PER SOLUZIONE PER INFUSIONE [Suspect]
     Active Substance: ETOPOSIDE
     Indication: LUNG ADENOCARCINOMA
     Route: 042
     Dates: start: 20170518, end: 20170518
  2. ZYLORIC - 300 MG COMPRESSE - TEOFARMA S.R.L. [Suspect]
     Active Substance: ALLOPURINOL
     Indication: PRODUCT USED FOR UNKNOWN INDICATION
     Dosage: 300 MILLIGRAM DAILY;
     Route: 048
     Dates: start: 20170517, end: 20170519
  3. CONTRAMAL - 100 MG COMPRESSE A RILASCIO PROLUNGATO-GRUNENTHAL ITALIA S [Concomitant]
     Indication: PRODUCT USED FOR UNKNOWN INDICATION
  4. SOLDESAM - 8 MG/2 ML SOLUZIONE INIETTABILE-LABORATORIO FARMACOLOGICO M [Concomitant]
     Indication: PRODUCT USED FOR UNKNOWN INDICATION
  5. PANTORC - 40 MG COMPRESSE GASTRORESISTENTI-TAKEDA ITALIA S.P.A. [Concomitant]
     Indication: PRODUCT USED FOR UNKNOWN INDICATION
  6. TACHIPIRINA - 1000 MG COMPRESSE-AZIENDE CHMICHE RIUNITE ANGELINI FRANC [Concomitant]
     Indication: PRODUCT USED FOR UNKNOWN INDICATION
  7. ZEFFIX - 100 MG COMPRESSE FILMRIVESTITE-GLAXO GROUP LIMITED [Concomitant]
     Indication: PRODUCT USED FOR UNKNOWN INDICATION

REACTIONS (3)
  - Erythema [Recovering/Resolving]
  - Hypotension [Recovering/Resolving]
  - Throat tightness [Recovering/Resolving]

NARRATIVE: CASE EVENT DATE: 20170518
